FAERS Safety Report 4410461-X (Version None)
Quarter: 2004Q3

REPORT INFORMATION
  Report Type: 
  Country: None (occurrence: None)
  Receive Date: 20040729
  Receipt Date: 20040722
  Transmission Date: 20050211
  Serious: Yes (Life-Threatening, Disabling)
  Sender: FDA-Public Use
  Company Number: US-MERCK-0407USA01933

PATIENT
  Age: 67 Year
  Sex: Female

DRUGS (12)
  1. FOSAMAX [Suspect]
     Indication: BONE DISORDER
     Route: 048
     Dates: start: 20040528, end: 20040528
  2. XANAX [Concomitant]
     Route: 065
  3. MAALOX [Concomitant]
     Route: 065
  4. ZYRTEC [Concomitant]
     Route: 065
  5. DOCUSATE SODIUM [Concomitant]
     Route: 065
  6. NEXIUM [Concomitant]
     Route: 065
  7. SYNTHROID [Concomitant]
     Route: 065
  8. DITROPAN XL [Concomitant]
     Route: 065
  9. PROTONIX [Concomitant]
     Route: 065
  10. ZOLOFT [Concomitant]
     Route: 065
  11. TRIAMTERENE [Concomitant]
     Route: 065
  12. AMBIEN [Concomitant]
     Route: 065

REACTIONS (3)
  - DIARRHOEA HAEMORRHAGIC [None]
  - EATING DISORDER [None]
  - NAUSEA [None]
